FAERS Safety Report 10283418 (Version 5)
Quarter: 2014Q3

REPORT INFORMATION
  Report Type: Spontaneous
  Country: MX (occurrence: MX)
  Receive Date: 20140708
  Receipt Date: 20140929
  Transmission Date: 20150326
  Serious: Yes (Death, Life-Threatening, Hospitalization, Disabling, Other)
  Sender: FDA-Public Use
  Company Number: MX-ROCHE-1424089

PATIENT
  Age: 67 Year
  Sex: Male

DRUGS (13)
  1. ZELBORAF [Interacting]
     Active Substance: VEMURAFENIB
     Route: 048
     Dates: start: 20140706
  2. MEKINIST [Interacting]
     Active Substance: TRAMETINIB DIMETHYL SULFOXIDE
     Route: 048
     Dates: start: 201407, end: 201408
  3. CORTISONE [Concomitant]
     Active Substance: CORTISONE\HYDROCORTISONE
     Route: 065
     Dates: start: 201406, end: 201406
  4. ZELBORAF [Interacting]
     Active Substance: VEMURAFENIB
     Route: 048
     Dates: start: 201406, end: 201406
  5. MORPHINE [Suspect]
     Active Substance: MORPHINE
     Indication: PAIN
     Route: 042
     Dates: start: 201408, end: 201408
  6. MEKINIST [Interacting]
     Active Substance: TRAMETINIB DIMETHYL SULFOXIDE
     Indication: METASTATIC MALIGNANT MELANOMA
     Route: 048
     Dates: start: 201406, end: 201406
  7. CORTISONE [Concomitant]
     Active Substance: CORTISONE\HYDROCORTISONE
     Route: 048
     Dates: start: 201407
  8. ZELBORAF [Interacting]
     Active Substance: VEMURAFENIB
     Dosage: 3-0-3
     Route: 048
     Dates: start: 201407, end: 201407
  9. MEKINIST [Interacting]
     Active Substance: TRAMETINIB DIMETHYL SULFOXIDE
     Route: 048
     Dates: start: 201407, end: 201407
  10. ZELBORAF [Suspect]
     Active Substance: VEMURAFENIB
     Indication: MALIGNANT MELANOMA
     Route: 048
     Dates: start: 201406, end: 201406
  11. ZELBORAF [Interacting]
     Active Substance: VEMURAFENIB
     Dosage: 3-0-4
     Route: 048
     Dates: start: 201407, end: 201407
  12. ZELBORAF [Interacting]
     Active Substance: VEMURAFENIB
     Dosage: 4-0-3
     Route: 048
     Dates: start: 201407, end: 201408
  13. MORPHINE [Suspect]
     Active Substance: MORPHINE
     Route: 042
     Dates: start: 201408, end: 201408

REACTIONS (31)
  - Brain injury [Unknown]
  - Convulsion [Unknown]
  - Pneumonia [Unknown]
  - Eating disorder [Recovering/Resolving]
  - Genital discomfort [Recovering/Resolving]
  - Asthenia [Recovered/Resolved]
  - Metastasis [Not Recovered/Not Resolved]
  - Aspiration [Unknown]
  - Bacteraemia [Not Recovered/Not Resolved]
  - Dry mouth [Recovering/Resolving]
  - Device related infection [Recovered/Resolved]
  - Intestinal obstruction [Recovered/Resolved]
  - Loss of consciousness [Unknown]
  - Productive cough [Recovering/Resolving]
  - Productive cough [Not Recovered/Not Resolved]
  - Sleep disorder [Unknown]
  - Speech disorder [Recovered/Resolved]
  - Body temperature increased [Recovered/Resolved]
  - Cough [Not Recovered/Not Resolved]
  - Drug interaction [Unknown]
  - Death [Fatal]
  - Epigastric discomfort [Not Recovered/Not Resolved]
  - Rash [Recovered/Resolved]
  - Posture abnormal [Unknown]
  - Gaze palsy [Unknown]
  - Pharyngitis [Recovering/Resolving]
  - Hallucination [Unknown]
  - Cough [Not Recovered/Not Resolved]
  - Hiccups [Not Recovered/Not Resolved]
  - Disease progression [Not Recovered/Not Resolved]
  - Drug abuse [Unknown]

NARRATIVE: CASE EVENT DATE: 201406
